FAERS Safety Report 25767414 (Version 1)
Quarter: 2025Q3

REPORT INFORMATION
  Report Type: Spontaneous
  Country: US (occurrence: None)
  Receive Date: 20250904
  Receipt Date: 20250904
  Transmission Date: 20251020
  Serious: Yes (Other)
  Sender: FDA-CTU
  Company Number: None

PATIENT
  Age: 71 Year
  Sex: Female
  Weight: 57.6 kg

DRUGS (7)
  1. ONDANSETRON [Suspect]
     Active Substance: ONDANSETRON
     Indication: Cataract operation
     Dosage: OTHER QUANTITY : 1 TABLET(S);?FREQUENCY : EVERY 8 HOURS;?
     Route: 048
     Dates: start: 20250822, end: 20250824
  2. ONDANSETRON [Suspect]
     Active Substance: ONDANSETRON
     Indication: Procedural nausea
  3. MONTELUKAST SODIUM [Concomitant]
     Active Substance: MONTELUKAST SODIUM
  4. Pro Air RespiClick inhaler [Concomitant]
  5. Calcium and Vit D daily [Concomitant]
  6. Vit D 1000 IU daily [Concomitant]
  7. Glucosamine/Chondroitin/MSM 2 capsules daily [Concomitant]

REACTIONS (2)
  - Faecaloma [None]
  - Blood pressure decreased [None]

NARRATIVE: CASE EVENT DATE: 20250827
